FAERS Safety Report 9524734 (Version 1)
Quarter: 2013Q1

REPORT INFORMATION
  Report Type: Spontaneous
  Country: US (occurrence: None)
  Receive Date: 20130305
  Receipt Date: 20130305
  Transmission Date: 20140127
  Serious: Yes (Hospitalization)
  Sender: FDA-Public Use
  Company Number: 163-21880-12023215

PATIENT
  Age: 91 Year
  Sex: Male

DRUGS (14)
  1. REVLIMID (LENALIDOMIDE) (25 MILLIGRAM, CAPSULES) [Suspect]
     Indication: LYMPHOMA
     Dosage: 25 MG CAPSULE, DAYS 1-21, PO
     Dates: start: 20120204, end: 20120225
  2. ATENOLOL [Concomitant]
  3. ACYCLOVIR (ACICLOVIR) [Concomitant]
  4. AMBIEN (ZOLPIDEM TARTRATE) [Concomitant]
  5. DECADRON (DEXAMETHASONE) [Concomitant]
  6. DIGOXIN [Concomitant]
  7. COLACE (DOCUSATE SODIUM) [Concomitant]
  8. DORZOLAMIDE [Concomitant]
  9. IMODIUM (LOPERAMIDE) [Concomitant]
  10. METOPROLOL [Concomitant]
  11. PREDNISONE [Concomitant]
  12. SENNA [Concomitant]
  13. SERTRALINE [Concomitant]
  14. WARFARIN [Concomitant]

REACTIONS (3)
  - Atrial fibrillation [None]
  - Tachycardia [None]
  - Fall [None]
